FAERS Safety Report 8936355 (Version 1)
Quarter: 2012Q4

REPORT INFORMATION
  Report Type: 
  Country: US (occurrence: US)
  Receive Date: 20121130
  Receipt Date: 20121130
  Transmission Date: 20130627
  Serious: No
  Sender: FDA-Public Use
  Company Number: US-PFIZER INC-2012300937

PATIENT
  Age: 83 Year
  Sex: Female
  Weight: 82.99 kg

DRUGS (4)
  1. LYRICA [Suspect]
     Indication: NEUROPATHY
     Dosage: 50 mg, 2x/day
     Route: 048
  2. LYRICA [Suspect]
     Dosage: 50 mg, 2x/day
     Route: 048
     Dates: start: 201209, end: 201211
  3. CARVEDILOL [Concomitant]
     Indication: TACHYCARDIA
     Dosage: 6.25 mg, 2x/day
  4. LOSARTAN [Concomitant]
     Indication: BLOOD PRESSURE HIGH
     Dosage: 100 mg, UNK

REACTIONS (2)
  - Dry mouth [Not Recovered/Not Resolved]
  - Pain [Unknown]
